FAERS Safety Report 6393551-4 (Version None)
Quarter: 2009Q4

REPORT INFORMATION
  Report Type: 
  Country: None (occurrence: None)
  Receive Date: 20091008
  Receipt Date: 20091002
  Transmission Date: 20100525
  Serious: Yes (Hospitalization)
  Sender: FDA-Public Use
  Company Number: B0596541A

PATIENT
  Sex: Female
  Weight: 83 kg

DRUGS (4)
  1. LAPATINIB [Suspect]
     Indication: BREAST CANCER
     Dosage: 1500MG PER DAY
     Route: 048
     Dates: start: 20090129
  2. TRASTUZUMAB [Suspect]
     Indication: BREAST CANCER
     Route: 042
     Dates: start: 20080916
  3. METOPROLOL TARTRATE [Concomitant]
     Dosage: 50MG PER DAY
     Route: 048
     Dates: start: 20081201
  4. DIROTON [Concomitant]
     Dosage: 10MG PER DAY
     Route: 048
     Dates: start: 20081201

REACTIONS (5)
  - BODY TEMPERATURE INCREASED [None]
  - CHEST PAIN [None]
  - COUGH [None]
  - DYSPNOEA [None]
  - LOBAR PNEUMONIA [None]
